FAERS Safety Report 8544257-4 (Version None)
Quarter: 2012Q3

REPORT INFORMATION
  Report Type: 
  Country: None (occurrence: None)
  Receive Date: 20120727
  Receipt Date: 20120718
  Transmission Date: 20120928
  Serious: Yes (Hospitalization)
  Sender: FDA-Public Use
  Company Number: US-ELI_LILLY_AND_COMPANY-US201104002213

PATIENT
  Sex: Female

DRUGS (20)
  1. FORTEO [Suspect]
     Dosage: 20 UG, QD
     Route: 058
     Dates: end: 20111225
  2. CALCIUM [Concomitant]
     Dosage: 1 DF, TID
  3. GLUCOSAMINE [Concomitant]
  4. FORTEO [Suspect]
     Dosage: 20 UG, QD
     Route: 058
  5. FERROUS GLUCONATE [Concomitant]
     Dosage: 1 DF, BID
  6. PRILOSEC [Concomitant]
     Dosage: 20 MG, EACH MORNING
  7. VITAMIN D [Concomitant]
     Dosage: 1 DF, TID
  8. EXTRA STRENGTH TYLENOL PM [Suspect]
     Dosage: UNK, PRN
  9. FORTEO [Suspect]
     Dosage: 20 UG, QD
     Route: 058
  10. FEXOFENADINE [Concomitant]
  11. ETODOLAC [Concomitant]
     Indication: ARTHRITIS
     Dosage: 400 MG, BID
  12. ASPIRIN [Concomitant]
     Dosage: 81 MG, QD
  13. FORTEO [Suspect]
     Dosage: 20 UG, QD
     Route: 058
  14. FOLIC ACID [Concomitant]
     Indication: RED BLOOD CELL ABNORMALITY
     Dosage: 1 DF, BID
  15. VITAMIN B-12 [Concomitant]
     Indication: RED BLOOD CELL ABNORMALITY
  16. VITAMIN B COMPLEX WITH VITAMIN C [Concomitant]
  17. MULTI-VITAMIN [Concomitant]
     Dosage: UNK, QD
  18. FORTEO [Suspect]
     Indication: OSTEOPOROSIS
     Dosage: 20 UG, QD
     Route: 058
     Dates: start: 20100801
  19. FORTEO [Suspect]
     Dosage: 20 UG, QD
     Route: 058
  20. FISH OIL [Concomitant]

REACTIONS (16)
  - VISION BLURRED [None]
  - HIP FRACTURE [None]
  - HYPERKERATOSIS [None]
  - ANAEMIA [None]
  - LOCALISED INFECTION [None]
  - INFECTED BUNION [None]
  - LIMB INJURY [None]
  - FALL [None]
  - INFECTION [None]
  - ARTHRALGIA [None]
  - GAIT DISTURBANCE [None]
  - HEADACHE [None]
  - DRUG DOSE OMISSION [None]
  - CATARACT [None]
  - CELLULITIS [None]
  - BALANCE DISORDER [None]
